FAERS Safety Report 7309123-0 (Version None)
Quarter: 2011Q1

REPORT INFORMATION
  Report Type: 
  Country: None (occurrence: None)
  Receive Date: 20110223
  Receipt Date: 20110210
  Transmission Date: 20110831
  Serious: Yes (Other)
  Sender: FDA-Public Use
  Company Number: PHHY2011IT10789

PATIENT
  Age: 76 Year
  Sex: Male

DRUGS (1)
  1. TRIAMCINOLONE [Suspect]

REACTIONS (6)
  - VISUAL ACUITY TESTS ABNORMAL [None]
  - VISUAL IMPAIRMENT [None]
  - VISUAL ACUITY REDUCED [None]
  - RETINAL DEGENERATION [None]
  - MACULAR DEGENERATION [None]
  - RETINAL PIGMENT EPITHELIAL TEAR [None]
